FAERS Safety Report 4422776-X (Version None)
Quarter: 2004Q3

REPORT INFORMATION
  Report Type: 
  Country: None (occurrence: None)
  Receive Date: 20040720
  Receipt Date: 20040309
  Transmission Date: 20050211
  Serious: Yes (Hospitalization, Other)
  Sender: FDA-Public Use
  Company Number: 04R-163-0260096-00

PATIENT
  Age: 9 Day
  Sex: Male
  Weight: 0.715 kg

DRUGS (6)
  1. SURVANTA [Suspect]
     Indication: NEONATAL RESPIRATORY DISTRESS SYNDROME
     Dosage: 3 CC, ENDOTRACHEAL
     Route: 007
     Dates: start: 20040214, end: 20040214
  2. IBUPROFEN L-LYSINE INTRAVENOUS SOLUTION (BLINDED) (IBUPROFEN L-LYSINE [Concomitant]
  3. GENTAMICIN SULFATE (GENTAMICIN SULFATE) (GENTAMICIN SULFATE) [Concomitant]
  4. AMPLICILLIN (AMPLICILLIN) (AMPLICILLIN) [Concomitant]
  5. FENTANYL CITRATE (FENTANYL CITRATE) (FENTANYL CITRATE) [Concomitant]
  6. MIDAZOLAM HYDROCHLORIDE [Concomitant]

REACTIONS (2)
  - ENTEROCOLITIS [None]
  - PULMONARY HAEMORRHAGE [None]
